FAERS Safety Report 15959395 (Version 2)
Quarter: 2019Q1

REPORT INFORMATION
  Report Type: Spontaneous
  Country: GB (occurrence: GB)
  Receive Date: 20190214
  Receipt Date: 20190315
  Transmission Date: 20190417
  Serious: Yes (Other)
  Sender: FDA-Public Use
  Company Number: GB-REGENERON PHARMACEUTICALS, INC.-2019-16706

PATIENT

DRUGS (1)
  1. EYLEA [Suspect]
     Active Substance: AFLIBERCEPT
     Indication: PRODUCT USED FOR UNKNOWN INDICATION
     Dosage: Q1MON, RECEIVED A TOTAL OF 4 INJECTIONS
     Dates: start: 201810

REACTIONS (5)
  - Visual impairment [Unknown]
  - Drug effect delayed [Unknown]
  - Cardiac failure [Unknown]
  - Eye disorder [Unknown]
  - Thyroid disorder [Unknown]
